FAERS Safety Report 6309851-X (Version None)
Quarter: 2009Q3

REPORT INFORMATION
  Report Type: 
  Country: None (occurrence: None)
  Receive Date: 20090814
  Receipt Date: 20090723
  Transmission Date: 20100115
  Serious: Yes (Hospitalization, Congenital Anomaly)
  Sender: FDA-Public Use
  Company Number: CZ-PFIZER SPOL. S R.O.-2009220536

PATIENT
  Age: 77 Year

DRUGS (3)
  1. SUNITINIB MALATE [Suspect]
     Indication: RENAL CANCER
     Dosage: 50 MG, 1X/DAY
     Dates: start: 20081029, end: 20081113
  2. TRAMAL [Concomitant]
     Route: 048
     Dates: start: 20081020
  3. ROFERON-A [Concomitant]
     Route: 058
     Dates: start: 20081010, end: 20081020

REACTIONS (1)
  - CEREBROVASCULAR ACCIDENT [None]
